FAERS Safety Report 21644116 (Version 1)
Quarter: 2022Q4

REPORT INFORMATION
  Report Type: Spontaneous
  Country: FR (occurrence: FR)
  Receive Date: 20221125
  Receipt Date: 20221125
  Transmission Date: 20230113
  Serious: Yes (Other)
  Sender: FDA-Public Use
  Company Number: FR-ABBVIE-4214813

PATIENT
  Age: 82 Year
  Sex: Female
  Weight: 66.4 kg

DRUGS (8)
  1. DEPAKOTE [Suspect]
     Active Substance: DIVALPROEX SODIUM
     Indication: Delusion of grandeur
     Dosage: 750 MG TWICE DAILY (BID) (1-0-2) ORAL ) 1-0-2 TAB/DAY
     Route: 048
     Dates: start: 202203, end: 20220619
  2. ATORVASTATINE (ATORVASTATIN) [Concomitant]
     Indication: Product used for unknown indication
  3. ACIDE FOLIQUE (FOLIC ACID) [Concomitant]
     Indication: Product used for unknown indication
  4. AMDINOCILLIN [Concomitant]
     Active Substance: AMDINOCILLIN
     Indication: Product used for unknown indication
  5. LOXAPINE SUCCINATE [Suspect]
     Active Substance: LOXAPINE SUCCINATE
     Indication: Delusion of grandeur
     Dosage: 25 MG  0-0-1 TAB/DAY
     Route: 048
     Dates: start: 202203, end: 20220501
  6. OXAZEPAM [Concomitant]
     Active Substance: OXAZEPAM
     Indication: Product used for unknown indication
  7. AMLODIPINE BESYLATE [Concomitant]
     Active Substance: AMLODIPINE BESYLATE
     Indication: Product used for unknown indication
  8. LEVOTHYROXINE SODIUM [Concomitant]
     Active Substance: LEVOTHYROXINE SODIUM
     Indication: Product used for unknown indication
     Dosage: 50 UG

REACTIONS (1)
  - Extrapyramidal disorder [Recovering/Resolving]

NARRATIVE: CASE EVENT DATE: 20220401
